FAERS Safety Report 17372568 (Version 1)
Quarter: 2020Q1

REPORT INFORMATION
  Report Type: Spontaneous
  Country: IT (occurrence: IT)
  Receive Date: 20200205
  Receipt Date: 20200205
  Transmission Date: 20200409
  Serious: Yes (Hospitalization, Other)
  Sender: FDA-Public Use
  Company Number: NVSC2020IT030049

PATIENT
  Age: 14 Year
  Sex: Female

DRUGS (2)
  1. MUSCORIL [Suspect]
     Active Substance: THIOCOLCHICOSIDE
     Indication: PRODUCT USED FOR UNKNOWN INDICATION
     Dosage: UNK
     Route: 065
  2. VOLTAREN [Suspect]
     Active Substance: DICLOFENAC SODIUM
     Indication: MYALGIA
     Dosage: UNK
     Route: 065

REACTIONS (4)
  - Decreased immune responsiveness [Unknown]
  - Myelitis [Unknown]
  - Paralysis [Unknown]
  - Pharyngitis [Unknown]
